FAERS Safety Report 10543767 (Version 2)
Quarter: 2014Q4

REPORT INFORMATION
  Report Type: Spontaneous
  Country: US (occurrence: None)
  Receive Date: 20141010
  Receipt Date: 20141205
  Transmission Date: 20150529
  Serious: No
  Sender: FDA-Public Use
  Company Number: 163-POMAL-14070488

PATIENT
  Age: 70 Year
  Sex: Female
  Weight: 64.41 kg

DRUGS (23)
  1. DEXAMETHASONE. [Concomitant]
     Active Substance: DEXAMETHASONE
  2. FUROSEMIDE. [Concomitant]
     Active Substance: FUROSEMIDE
  3. ACYCLOVIR (ACICLOVIR) (ACICLOVIR) [Concomitant]
     Active Substance: ACYCLOVIR
  4. MICARDIS [Concomitant]
     Active Substance: TELMISARTAN
  5. PNEUMOCOCCAL 23 (PNEUMOCOCCAL VACCINE ) [Concomitant]
  6. BORTEZOMIB (BORTEZEMIB) (INJECTION) [Concomitant]
  7. OXYCONTIN [Concomitant]
     Active Substance: OXYCODONE HYDROCHLORIDE
  8. CALCIUM + VITAMIN D (LEKOVIT CA) [Concomitant]
     Active Substance: CALCIUM\VITAMIN D
  9. RIVAROXABAN (RIVAROXABAN) [Concomitant]
  10. PROCHLORPERAZINE MALEATE IPROCHLORPERAZINE MALEATE) [Concomitant]
  11. FENTANYL (FENTANYL) (POULTICE OR PATCH) [Concomitant]
     Active Substance: FENTANYL
  12. CYCLOPHOSPHAMIDE (CYCLOPHOSPHAMIDE) [Concomitant]
     Active Substance: CYCLOPHOSPHAMIDE
  13. POMALYST [Suspect]
     Active Substance: POMALIDOMIDE
     Indication: PLASMA CELL MYELOMA
     Dosage: 4 MG, 21 IN 21 D, PO
     Route: 048
     Dates: start: 20140307
  14. ONDANSETRON. [Concomitant]
     Active Substance: ONDANSETRON
  15. VITAMIN D [Concomitant]
     Active Substance: CHOLECALCIFEROL
  16. INFLUENZA (INFLUENZA VACCINE) [Concomitant]
  17. LORAZEPAM (LORAZEPAM) [Concomitant]
     Active Substance: LORAZEPAM
  18. ASPIRIN (ACETYLSALICYLIC ACID) [Concomitant]
     Active Substance: ASPIRIN
  19. ZOLENDRONIC ACID (ZOLENDRONIC ACID) [Concomitant]
  20. HYDROXYZINE HCL (HYDROXYZINE HYDORHCLORIDE) [Concomitant]
  21. HYDROMORPHONE (HYDROMORPHONE) (4 MILLIGRAMS, UNKNOWN) [Concomitant]
  22. POTASSIUM (POTASSIUM) [Concomitant]
     Active Substance: POTASSIUM
  23. TELEMISARTAN-HYDROCHLOROTHIAZIDE (HYDROCHLROTHIAZIDE TELMISARTAN) [Concomitant]

REACTIONS (1)
  - Pharyngitis streptococcal [None]

NARRATIVE: CASE EVENT DATE: 20140623
